FAERS Safety Report 5501411-3 (Version None)
Quarter: 2007Q4

REPORT INFORMATION
  Report Type: 
  Country: None (occurrence: None)
  Receive Date: 20071026
  Receipt Date: 20071026
  Transmission Date: 20080405
  Serious: Yes (Hospitalization)
  Sender: FDA-Public Use
  Company Number: None

PATIENT
  Age: 61 Year
  Sex: Male
  Weight: 114.76 kg

DRUGS (1)
  1. OXALIPLATIN [Suspect]
     Indication: COLON CANCER
     Dosage: 426MG X1 IV
     Route: 042
     Dates: start: 20071023

REACTIONS (8)
  - DIZZINESS [None]
  - HYPERHIDROSIS [None]
  - INFUSION RELATED REACTION [None]
  - MEDICATION ERROR [None]
  - OVERDOSE [None]
  - PARAESTHESIA [None]
  - PARAESTHESIA ORAL [None]
  - WRONG DRUG ADMINISTERED [None]
